FAERS Safety Report 6944613-1 (Version None)
Quarter: 2010Q3

REPORT INFORMATION
  Report Type: 
  Country: None (occurrence: None)
  Receive Date: 20100827
  Receipt Date: 20100816
  Transmission Date: 20110219
  Serious: Yes (Other)
  Sender: FDA-Public Use
  Company Number: US-WYE-H16975410

PATIENT
  Sex: Female
  Weight: 124.85 kg

DRUGS (5)
  1. PREMARIN [Suspect]
     Indication: MENOPAUSE
     Route: 048
  2. HYDROCHLOROTHIAZIDE [Concomitant]
     Indication: PRODUCT USED FOR UNKNOWN INDICATION
     Dosage: UNKNOWN
     Route: 065
  3. LASIX [Concomitant]
     Indication: PRODUCT USED FOR UNKNOWN INDICATION
     Dosage: UNKNOWN
     Route: 065
  4. MEDROXYPROGESTERONE [Suspect]
     Indication: MENOPAUSE
     Route: 048
  5. MEDROXYPROGESTERONE [Suspect]
     Route: 048

REACTIONS (7)
  - ANXIETY [None]
  - ARTHRALGIA [None]
  - CHONDROPATHY [None]
  - HYPERSENSITIVITY [None]
  - NASOPHARYNGITIS [None]
  - POSTMENOPAUSAL HAEMORRHAGE [None]
  - PRODUCT COUNTERFEIT [None]
